FAERS Safety Report 8170536 (Version 2)
Quarter: 2012Q4

REPORT INFORMATION
  Report Type: 
  Country: TW (occurrence: TW)
  Receive Date: 20111006
  Receipt Date: 20120829
  Transmission Date: 20130627
  Serious: Yes (Hospitalization)
  Sender: FDA-Public Use
  Company Number: TW-TYCO HEALTHCARE/MALLINCKRODT-T201101938

PATIENT
  Age: 31 Year
  Sex: Female

DRUGS (8)
  1. MORPHINE [Suspect]
     Indication: POSTOPERATIVE ANALGESIA
     Dosage: Single 2 mg bolus in 10 ml normal saline
     Route: 008
  2. MORPHINE [Suspect]
     Dosage: 2 mg q 12 hours for 3 days
     Route: 008
  3. FENTANYL [Suspect]
     Indication: EPIDURAL ANALGESIA
     Dosage: Continuous infusion of 2 ug/ml
     Route: 008
  4. ROPIVACAINE [Suspect]
     Indication: EPIDURAL ANALGESIA
     Dosage: Continuous infusion of 1%
  5. NORMAL SALINE [Suspect]
     Indication: EPIDURAL ANALGESIA
     Route: 008
  6. LIDOCAINE [Suspect]
     Indication: LOCAL ANAESTHESIA
     Dosage: 1%
  7. BUPIVACAINE [Suspect]
     Indication: SPINAL ANAESTHESIA
     Dosage: 11 mg of 0.5%
     Route: 008
  8. AMPICILLIN [Concomitant]
     Indication: PROPHYLAXIS
     Dosage: 2 g, single
     Route: 042

REACTIONS (1)
  - Wound infection staphylococcal [Recovered/Resolved]
